FAERS Safety Report 6450524-0 (Version None)
Quarter: 2009Q4

REPORT INFORMATION
  Report Type: 
  Country: None (occurrence: None)
  Receive Date: 20091123
  Receipt Date: 20091113
  Transmission Date: 20100525
  Serious: Yes (Hospitalization)
  Sender: FDA-Public Use
  Company Number: US-CUBIST-2009S1000434

PATIENT
  Age: 69 Year
  Sex: Female
  Weight: 109.8 kg

DRUGS (13)
  1. CUBICIN [Suspect]
     Indication: DEVICE RELATED INFECTION
     Route: 042
     Dates: start: 20090806, end: 20090818
  2. CUBICIN [Suspect]
     Route: 042
     Dates: start: 20090806, end: 20090818
  3. HYDROXYZINE [Concomitant]
     Indication: DRUG USE FOR UNKNOWN INDICATION
     Route: 048
  4. FUROSEMIDE [Concomitant]
     Indication: DRUG USE FOR UNKNOWN INDICATION
     Route: 048
  5. LEVOTHYROXINE SODIUM [Concomitant]
     Indication: HYPOTHYROIDISM
     Route: 048
  6. DOCUSATE SODIUM W/SENNOSIDE A+B [Concomitant]
     Indication: DRUG USE FOR UNKNOWN INDICATION
     Route: 048
  7. DOCUSATE SODIUM W/SENNOSIDE A+B [Concomitant]
     Route: 048
  8. TYLENOL (CAPLET) [Concomitant]
     Indication: DRUG USE FOR UNKNOWN INDICATION
     Route: 048
  9. ALLOPURINOL [Concomitant]
     Indication: GOUT
     Route: 048
  10. PREVACID [Concomitant]
     Indication: DRUG USE FOR UNKNOWN INDICATION
     Route: 048
  11. DARVOCET-N 100 [Concomitant]
     Indication: DRUG USE FOR UNKNOWN INDICATION
     Route: 048
  12. DARVOCET-N 100 [Concomitant]
     Route: 048
  13. OXACILLIN [Concomitant]
     Indication: DEVICE RELATED INFECTION
     Route: 042
     Dates: start: 20090717, end: 20090806

REACTIONS (2)
  - IGA NEPHROPATHY [None]
  - RHABDOMYOLYSIS [None]
